FAERS Safety Report 4524897-X (Version None)
Quarter: 2004Q4

REPORT INFORMATION
  Report Type: 
  Country: None (occurrence: None)
  Receive Date: 20041117
  Receipt Date: 20040423
  Transmission Date: 20050328
  Serious: Yes (Other)
  Sender: FDA-Public Use
  Company Number: 2004S1001256

PATIENT
  Age: 49 Year
  Sex: Male

DRUGS (2)
  1. CLOZAPINE [Suspect]
     Indication: SCHIZOPHRENIA
     Dosage: 12.5MG QD, THEN 25MG BID, ORAL
     Route: 048
     Dates: start: 20040409, end: 20040423
  2. ZIPRASIDONE [Concomitant]

REACTIONS (1)
  - PLATELET COUNT DECREASED [None]
